FAERS Safety Report 4847897-9 (Version None)
Quarter: 2005Q4

REPORT INFORMATION
  Report Type: 
  Country: None (occurrence: None)
  Receive Date: 20051206
  Receipt Date: 20051206
  Transmission Date: 20060501
  Serious: Yes (Hospitalization)
  Sender: FDA-Public Use
  Company Number: None

PATIENT
  Age: 51 Year
  Sex: Male

DRUGS (2)
  1. RIBAVIRIN [Suspect]
     Indication: HEPATITIS C
     Dosage: 1200MG   DAILY   PO
     Route: 048
     Dates: start: 20050201, end: 20051002
  2. INTERFERON    UNK    ROCHE [Suspect]
     Indication: HEPATITIS C
     Dates: start: 20050201, end: 20051002

REACTIONS (1)
  - PNEUMONITIS [None]
